FAERS Safety Report 14326667 (Version 1)
Quarter: 2017Q4

REPORT INFORMATION
  Report Type: Spontaneous
  Country: US (occurrence: US)
  Receive Date: 20171227
  Receipt Date: 20171227
  Transmission Date: 20180321
  Serious: No
  Sender: FDA-Public Use
  Company Number: US-TEVA-2017-US-839256

PATIENT
  Age: 24 Year
  Sex: Female

DRUGS (1)
  1. EQ MICON [Suspect]
     Active Substance: MICONAZOLE
     Dates: start: 20171211, end: 20171211

REACTIONS (2)
  - Urticaria [Not Recovered/Not Resolved]
  - Rash [Not Recovered/Not Resolved]

NARRATIVE: CASE EVENT DATE: 20171213
